FAERS Safety Report 25570046 (Version 1)
Quarter: 2025Q3

REPORT INFORMATION
  Report Type: Spontaneous
  Country: US (occurrence: US)
  Receive Date: 20250717
  Receipt Date: 20250717
  Transmission Date: 20251020
  Serious: No
  Sender: CONCORD BIOTECH LTD
  Company Number: US-CBL-003258

PATIENT
  Age: 27 Year
  Sex: Female

DRUGS (1)
  1. MYCOPHENOLATE MOFETIL [Suspect]
     Active Substance: MYCOPHENOLATE MOFETIL
     Indication: Nephropathy
     Dosage: DAILY DOSE:500 MG
     Route: 048
     Dates: end: 20250501

REACTIONS (2)
  - Exposure during pregnancy [Unknown]
  - Product use in unapproved indication [Unknown]
